FAERS Safety Report 13849231 (Version 1)
Quarter: 2017Q3

REPORT INFORMATION
  Report Type: Spontaneous
  Country: US (occurrence: US)
  Receive Date: 20170809
  Receipt Date: 20170809
  Transmission Date: 20171127
  Serious: No
  Sender: FDA-Public Use
  Company Number: None

PATIENT
  Age: 65 Year
  Sex: Female
  Weight: 69.85 kg

DRUGS (3)
  1. NEXIUM [Concomitant]
     Active Substance: ESOMEPRAZOLE MAGNESIUM
  2. PREPOPIK [Suspect]
     Active Substance: ANHYDROUS CITRIC ACID\MAGNESIUM OXIDE\SODIUM PICOSULFATE
     Indication: COLONOSCOPY
     Dosage: 10 MG/3.5G/12 G PER PACKET   2 PACKETS  ?1 PACKET AFTERNOON  1 PACKET EVENING  MOUTH
     Route: 048
     Dates: start: 20170801, end: 20170801
  3. HYDRO CODONE [Concomitant]

REACTIONS (1)
  - Product label issue [None]

NARRATIVE: CASE EVENT DATE: 20170802
